FAERS Safety Report 10862326 (Version 1)
Quarter: 2015Q1

REPORT INFORMATION
  Report Type: Report from Study
  Country: CN (occurrence: CN)
  Receive Date: 20150224
  Receipt Date: 20150224
  Transmission Date: 20150721
  Serious: Yes (Death)
  Sender: FDA-Public Use
  Company Number: CN-BAYER-2015-026783

PATIENT
  Age: 54 Year
  Sex: Female

DRUGS (5)
  1. SORAFENIB (RAF KINASE INHIBITOR) [Suspect]
     Active Substance: SORAFENIB
     Indication: HEPATOCELLULAR CARCINOMA
     Dosage: 400 MG, BID
     Route: 048
     Dates: start: 20141018, end: 20141113
  2. INSULIN ASPART [Concomitant]
     Active Substance: INSULIN ASPART
  3. ENTECAVIR. [Concomitant]
     Active Substance: ENTECAVIR
  4. ADEFOVIR DIPIVOXIL. [Concomitant]
     Active Substance: ADEFOVIR DIPIVOXIL
  5. AMINOPHYLLINE [Suspect]
     Active Substance: AMINOPHYLLINE
     Indication: BRONCHOSPASM

REACTIONS (1)
  - Respiratory failure [Fatal]

NARRATIVE: CASE EVENT DATE: 20141114
